FAERS Safety Report 5878599-8 (Version None)
Quarter: 2008Q3

REPORT INFORMATION
  Report Type: 
  Country: None (occurrence: None)
  Receive Date: 20080910
  Receipt Date: 20080831
  Transmission Date: 20090109
  Serious: No
  Sender: FDA-Public Use
  Company Number: 20085545

PATIENT
  Sex: Female

DRUGS (1)
  1. LIORESAL [Suspect]
     Indication: MUSCLE SPASTICITY
     Dosage: MCG,DAILY,INTRATHECAL
     Route: 037

REACTIONS (3)
  - GENERAL PHYSICAL HEALTH DETERIORATION [None]
  - PARTIAL SEIZURES [None]
  - SLEEP APNOEA SYNDROME [None]
